FAERS Safety Report 14769891 (Version 1)
Quarter: 2018Q2

REPORT INFORMATION
  Report Type: Spontaneous
  Country: KR (occurrence: KR)
  Receive Date: 20180417
  Receipt Date: 20180417
  Transmission Date: 20180711
  Serious: Yes (Death)
  Sender: FDA-Public Use
  Company Number: KR-BAYER-2018-068217

PATIENT
  Age: 57 Year
  Sex: Male

DRUGS (1)
  1. STIVARGA [Suspect]
     Active Substance: REGORAFENIB
     Indication: RECTAL CANCER METASTATIC
     Dosage: 160 MG
     Route: 048
     Dates: start: 20161121, end: 20170124

REACTIONS (1)
  - Death [Fatal]

NARRATIVE: CASE EVENT DATE: 20171109
